FAERS Safety Report 22151791 (Version 1)
Quarter: 2023Q1

REPORT INFORMATION
  Report Type: Spontaneous
  Country: IT (occurrence: IT)
  Receive Date: 20230329
  Receipt Date: 20230329
  Transmission Date: 20230418
  Serious: Yes (Hospitalization)
  Sender: FDA-Public Use
  Company Number: None

PATIENT
  Age: 30 Year
  Sex: Female

DRUGS (2)
  1. FLUNISOLIDE [Suspect]
     Active Substance: FLUNISOLIDE
     Indication: Product used for unknown indication
     Dosage: 1 MG/ ML SOLUTION FOR NEBULIZER
     Route: 065
  2. Effimia [Concomitant]
     Indication: Dysmenorrhoea
     Dosage: UNK
     Route: 065
     Dates: start: 202111

REACTIONS (3)
  - Angioedema [Recovered/Resolved]
  - Erythema [Recovered/Resolved]
  - Urticaria [Recovered/Resolved]

NARRATIVE: CASE EVENT DATE: 20230201
